FAERS Safety Report 23741869 (Version 1)
Quarter: 2024Q2

REPORT INFORMATION
  Report Type: Spontaneous
  Country: US (occurrence: None)
  Receive Date: 20240412
  Receipt Date: 20240412
  Transmission Date: 20240715
  Serious: Yes (Hospitalization)
  Sender: FDA-Public Use
  Company Number: None

PATIENT
  Age: 68 Year
  Sex: Male

DRUGS (19)
  1. PIRFENIDONE [Suspect]
     Active Substance: PIRFENIDONE
     Indication: Idiopathic pulmonary fibrosis
     Dosage: FREQUENCY : 3 TIMES A DAY;?
     Route: 048
     Dates: start: 20230501
  2. FUROSEMIDE [Concomitant]
     Active Substance: FUROSEMIDE
  3. COMBIVENT RESPIMAT [Concomitant]
     Active Substance: ALBUTEROL SULFATE\IPRATROPIUM BROMIDE
  4. ALBUTEROL [Concomitant]
     Active Substance: ALBUTEROL
  5. Pred forte opht susp [Concomitant]
  6. PANTOPRAZOLE [Concomitant]
     Active Substance: PANTOPRAZOLE
  7. JARDIANCE [Concomitant]
     Active Substance: EMPAGLIFLOZIN
  8. Stiolto repimat [Concomitant]
  9. MIDODRINE [Concomitant]
     Active Substance: MIDODRINE
  10. ROSUVASTATIN [Concomitant]
     Active Substance: ROSUVASTATIN
  11. Albuterol 1HFA [Concomitant]
  12. HUMULIN N [Concomitant]
     Active Substance: INSULIN HUMAN
  13. HUMULIN R [Concomitant]
     Active Substance: INSULIN HUMAN
  14. LOSARTAN [Concomitant]
     Active Substance: LOSARTAN
  15. Cyclopentolate opht drop [Concomitant]
  16. Benzonatatae [Concomitant]
  17. MAGNESIUM CHLORIDE [Concomitant]
     Active Substance: MAGNESIUM CHLORIDE
  18. COLACE [Concomitant]
     Active Substance: DOCUSATE SODIUM
  19. MELATONIN [Concomitant]
     Active Substance: MELATONIN

REACTIONS (6)
  - Respiratory failure [None]
  - Sepsis [None]
  - Pneumonia [None]
  - Dehydration [None]
  - Blood creatinine abnormal [None]
  - General physical health deterioration [None]

NARRATIVE: CASE EVENT DATE: 20230524
